FAERS Safety Report 7507509-2 (Version None)
Quarter: 2011Q2

REPORT INFORMATION
  Report Type: 
  Country: None (occurrence: None)
  Receive Date: 20110526
  Receipt Date: 20100621
  Transmission Date: 20111010
  Serious: No
  Sender: FDA-Public Use
  Company Number: US-MYLANLABS-2010S1011138

PATIENT
  Age: 64 Year
  Sex: Male

DRUGS (2)
  1. ZOLPIDEM TARTRATE [Suspect]
     Indication: INSOMNIA
     Route: 048
     Dates: start: 20080101, end: 20100501
  2. AMBIEN [Suspect]
     Indication: INSOMNIA
     Route: 048
     Dates: end: 20080101

REACTIONS (1)
  - MIDDLE INSOMNIA [None]
